FAERS Safety Report 7349405-X (Version None)
Quarter: 2011Q1

REPORT INFORMATION
  Report Type: 
  Country: None (occurrence: None)
  Receive Date: 20110304
  Receipt Date: 20101118
  Transmission Date: 20110831
  Serious: Yes (Hospitalization)
  Sender: FDA-Public Use
  Company Number: JP-20100037

PATIENT
  Age: 73 Year
  Sex: Male

DRUGS (2)
  1. FARMORUBICIN (FARMORUBICIN) [Suspect]
     Indication: THERAPEUTIC EMBOLISATION
     Route: 013
  2. LIPIODOL ULTRA FLUIDE (ETHIODIZED OIL) [Suspect]
     Indication: THERAPEUTIC EMBOLISATION
     Route: 013
     Dates: start: 20090101

REACTIONS (2)
  - OFF LABEL USE [None]
  - PANNICULITIS [None]
